FAERS Safety Report 9259352 (Version 2)
Quarter: 2013Q2

REPORT INFORMATION
  Report Type: Report from Study
  Country: DE (occurrence: DE)
  Receive Date: 20130427
  Receipt Date: 20130627
  Transmission Date: 20140414
  Serious: Yes (Death, Other)
  Sender: FDA-Public Use
  Company Number: DE-ROCHE-1218053

PATIENT
  Age: 65 Year
  Sex: Male
  Weight: 119.5 kg

DRUGS (1)
  1. METHOXY POLYETHYLENE GLYCOL-EPOETIN BETA [Suspect]
     Indication: NEPHROGENIC ANAEMIA
     Dosage: LAST DOSE PRIOR TO SAE :-21/MAR/2012
     Route: 042

REACTIONS (3)
  - Metastases to liver [Fatal]
  - Pyrexia [Unknown]
  - General physical health deterioration [Unknown]
